FAERS Safety Report 7528899-0 (Version None)
Quarter: 2011Q2

REPORT INFORMATION
  Report Type: 
  Country: None (occurrence: None)
  Receive Date: 20110607
  Receipt Date: 20110523
  Transmission Date: 20111010
  Serious: Yes (Other)
  Sender: FDA-Public Use
  Company Number: PHHY2011US31441

PATIENT
  Sex: Female

DRUGS (8)
  1. UNKNOWN GENERIC BP MEDICATIONS [Concomitant]
  2. DIOVAN [Suspect]
     Dosage: UNK
  3. COZAAR [Concomitant]
  4. DIOVAN HCT [Suspect]
     Dosage: 1 DF, UNK
  5. LISINOPRIL [Concomitant]
  6. NEXIUM [Concomitant]
  7. LASIX [Suspect]
  8. INHALER [Concomitant]

REACTIONS (6)
  - DYSPNOEA [None]
  - CARDIOMEGALY [None]
  - PULMONARY OEDEMA [None]
  - PLEURAL EFFUSION [None]
  - POLLAKIURIA [None]
  - FEELING ABNORMAL [None]
